FAERS Safety Report 12520903 (Version 1)
Quarter: 2016Q3

REPORT INFORMATION
  Report Type: Spontaneous
  Country: US (occurrence: US)
  Receive Date: 20160701
  Receipt Date: 20160701
  Transmission Date: 20161109
  Serious: No
  Sender: FDA-Public Use
  Company Number: US-BIOGEN-2016BI00258161

PATIENT
  Sex: Female

DRUGS (1)
  1. TECFIDERA [Suspect]
     Active Substance: DIMETHYL FUMARATE
     Indication: MULTIPLE SCLEROSIS
     Route: 065
     Dates: start: 20150315

REACTIONS (10)
  - Balance disorder [Unknown]
  - Memory impairment [Not Recovered/Not Resolved]
  - Hemiparesis [Unknown]
  - Gait disturbance [Unknown]
  - Feeling abnormal [Unknown]
  - Hernia [Unknown]
  - Abdominal pain upper [Unknown]
  - Arthralgia [Unknown]
  - Pain [Unknown]
  - Facial pain [Unknown]
